FAERS Safety Report 18541609 (Version 1)
Quarter: 2020Q4

REPORT INFORMATION
  Report Type: Spontaneous
  Country: FR (occurrence: FR)
  Receive Date: 20201124
  Receipt Date: 20201124
  Transmission Date: 20210114
  Serious: Yes (Hospitalization)
  Sender: FDA-Public Use
  Company Number: FR-BAUSCH-BL-2020-033345

PATIENT
  Age: 4 Year
  Sex: Female
  Weight: 15 kg

DRUGS (6)
  1. AUGMENTIN [Suspect]
     Active Substance: AMOXICILLIN\CLAVULANATE POTASSIUM
     Indication: PYREXIA
     Dosage: 40 MG/5MG/KG/J
     Route: 042
     Dates: start: 20201017, end: 20201022
  2. TIENAM [Suspect]
     Active Substance: CILASTATIN SODIUM\IMIPENEM
     Indication: PYREXIA
     Route: 042
     Dates: start: 20201023, end: 20201027
  3. SOLUPRED [Concomitant]
     Indication: COLITIS
     Route: 048
     Dates: start: 20201015
  4. GENTAMICINE [Suspect]
     Active Substance: GENTAMICIN
     Indication: PYREXIA
     Route: 042
     Dates: start: 20201022, end: 20201022
  5. ROCEPHINE [Suspect]
     Active Substance: CEFTRIAXONE SODIUM
     Indication: PYREXIA
     Dosage: 50 TO 80 MG/KG/DAY
     Route: 042
     Dates: start: 20201022, end: 20201022
  6. FLAGYL [Suspect]
     Active Substance: METRONIDAZOLE\METRONIDAZOLE HYDROCHLORIDE
     Indication: PYREXIA
     Dosage: 20 TO 30 MG/KG/DAY
     Route: 042
     Dates: start: 20201017, end: 20201022

REACTIONS (1)
  - Pyrexia [Recovering/Resolving]

NARRATIVE: CASE EVENT DATE: 20201025
